FAERS Safety Report 14653713 (Version 3)
Quarter: 2018Q2

REPORT INFORMATION
  Report Type: Spontaneous
  Country: US (occurrence: US)
  Receive Date: 20180319
  Receipt Date: 20180614
  Transmission Date: 20180711
  Serious: Yes (Hospitalization)
  Sender: FDA-Public Use
  Company Number: US-PFIZER INC-2018107594

PATIENT
  Age: 80 Year
  Sex: Female
  Weight: 72.56 kg

DRUGS (6)
  1. NITROGLYCERIN. [Suspect]
     Active Substance: NITROGLYCERIN
     Indication: CHEST PAIN
     Dosage: 0.4 MG, SINGLE (ONLY TOOK IT ONCE)
     Route: 048
     Dates: start: 2018, end: 2018
  2. ASPIRIN. [Concomitant]
     Active Substance: ASPIRIN
     Dosage: 81 MG, UNK
  3. ATORVASTATIN [Concomitant]
     Active Substance: ATORVASTATIN
     Dosage: 40 MG (TABLET), ONCE DAILY
     Route: 048
  4. COUMADIN [Concomitant]
     Active Substance: WARFARIN SODIUM
     Indication: BLOOD DISORDER
     Dosage: 5 MG, 1X/DAY/ SOMETIMES HALF A PILL
     Route: 048
  5. NITROGLYCERIN. [Suspect]
     Active Substance: NITROGLYCERIN
     Indication: MYOCARDIAL INFARCTION
     Dosage: 0.4 MG, SINGLE (ONCE)
     Route: 048
     Dates: start: 20171208
  6. THIORIDAZINE [Concomitant]
     Active Substance: THIORIDAZINE
     Dosage: UNK

REACTIONS (7)
  - Musculoskeletal discomfort [Unknown]
  - Feeling abnormal [Unknown]
  - Drug ineffective [Unknown]
  - Cerebral disorder [Unknown]
  - Limb discomfort [Unknown]
  - Fall [Unknown]
  - Dizziness [Unknown]

NARRATIVE: CASE EVENT DATE: 20171208
